FAERS Safety Report 4862848-9 (Version None)
Quarter: 2005Q4

REPORT INFORMATION
  Report Type: 
  Country: None (occurrence: None)
  Receive Date: 20051221
  Receipt Date: 20051214
  Transmission Date: 20060501
  Serious: Yes (Hospitalization)
  Sender: FDA-Public Use
  Company Number: 2005AP06470

PATIENT
  Age: 74 Year
  Sex: Female

DRUGS (7)
  1. OMEPRAL [Suspect]
     Indication: GASTRIC ULCER
     Route: 048
     Dates: start: 20050901
  2. VOLTAREN [Suspect]
     Route: 048
  3. AZULFIDINE [Concomitant]
     Route: 048
  4. FERROMIA [Concomitant]
     Route: 048
  5. PREDONINE [Concomitant]
     Route: 048
  6. ASPARA-CA [Concomitant]
     Route: 048
  7. ALFAROL [Concomitant]
     Route: 048

REACTIONS (1)
  - HYPERKALAEMIA [None]
